FAERS Safety Report 21421175 (Version 5)
Quarter: 2022Q4

REPORT INFORMATION
  Report Type: Report from Study
  Country: JP (occurrence: JP)
  Receive Date: 20221007
  Receipt Date: 20221209
  Transmission Date: 20230113
  Serious: Yes (Other)
  Sender: FDA-Public Use
  Company Number: JP-ABBVIE-4141861

PATIENT
  Age: 71 Year
  Sex: Male
  Weight: 62 kg

DRUGS (5)
  1. RINVOQ [Suspect]
     Active Substance: UPADACITINIB
     Indication: Rheumatoid arthritis
     Dosage: 15 MILLIGRAM
     Route: 048
     Dates: start: 20200925, end: 20220114
  2. PREDNISOLONE [Concomitant]
     Active Substance: PREDNISOLONE
     Indication: Rheumatoid arthritis
     Dosage: 2 MILLIGRAM
     Dates: start: 20200916, end: 20201020
  3. METHOTREXATE [Concomitant]
     Active Substance: METHOTREXATE
     Indication: Rheumatoid arthritis
     Dosage: 8 MG/WEEK
     Dates: start: 20201021
  4. FOLIC ACID [Concomitant]
     Active Substance: FOLIC ACID
     Indication: Product used for unknown indication
     Dosage: 5 MILLIGRAM
     Route: 048
     Dates: start: 20201021
  5. IGURATIMOD [Concomitant]
     Active Substance: IGURATIMOD
     Indication: Rheumatoid arthritis
     Dosage: 25 MILLIGRAM
     Dates: start: 20201104

REACTIONS (2)
  - Pancreatitis acute [Recovered/Resolved]
  - Drug-induced liver injury [Recovered/Resolved]

NARRATIVE: CASE EVENT DATE: 20220114
